FAERS Safety Report 4332204-0 (Version None)
Quarter: 2004Q1

REPORT INFORMATION
  Report Type: 
  Country: None (occurrence: None)
  Receive Date: 20040325
  Receipt Date: 20040216
  Transmission Date: 20041129
  Serious: No
  Sender: FDA-Public Use
  Company Number: US_0402100967

PATIENT
  Age: 60 Year
  Sex: Female
  Weight: 60 kg

DRUGS (7)
  1. FORTEO [Suspect]
     Indication: OSTEOPOROSIS
     Dosage: 20 UG/1 DAY
     Dates: start: 20040202
  2. ALLEGRA [Concomitant]
  3. PREVACID [Concomitant]
  4. ALEVE [Concomitant]
  5. VIACTIV [Concomitant]
  6. MIACALCIN [Concomitant]
  7. ACTONEL [Concomitant]

REACTIONS (1)
  - INJECTION SITE ERYTHEMA [None]
